FAERS Safety Report 9777557 (Version 1)
Quarter: 2013Q4

REPORT INFORMATION
  Report Type: Spontaneous
  Country: US (occurrence: US)
  Receive Date: 20131222
  Receipt Date: 20131222
  Transmission Date: 20140711
  Serious: No
  Sender: FDA-Public Use
  Company Number: US-009507513-1312USA007179

PATIENT
  Sex: Male

DRUGS (1)
  1. NASONEX [Suspect]
     Indication: SINUS DISORDER
     Dosage: 50 MICROGRAM/ONE SPRAY IN EACH NOSTRIL, QD
     Route: 045
     Dates: start: 2011

REACTIONS (2)
  - Incorrect product storage [Unknown]
  - No adverse event [Unknown]
